FAERS Safety Report 10445244 (Version 5)
Quarter: 2015Q4

REPORT INFORMATION
  Report Type: Spontaneous
  Country: US (occurrence: US)
  Receive Date: 20140910
  Receipt Date: 20151105
  Transmission Date: 20160304
  Serious: Yes (Life-Threatening, Hospitalization, Other)
  Sender: FDA-Public Use
  Company Number: US-BAYER-2014-133788

PATIENT
  Age: 18 Year
  Sex: Female

DRUGS (11)
  1. NAPROXEN. [Concomitant]
     Active Substance: NAPROXEN
     Dosage: UNK
     Dates: start: 20130312
  2. TORADOL [Concomitant]
     Active Substance: KETOROLAC TROMETHAMINE
     Dosage: 60 MG, UNK
     Route: 030
     Dates: start: 20130328
  3. IMITREX [Concomitant]
     Active Substance: SUMATRIPTAN\SUMATRIPTAN SUCCINATE
  4. KETOROLAC [Concomitant]
     Active Substance: KETOROLAC\KETOROLAC TROMETHAMINE
  5. MIRENA [Suspect]
     Active Substance: LEVONORGESTREL
     Indication: CONTRACEPTION
     Dosage: 20 MCG/24HR, CONT
     Route: 015
     Dates: start: 20121106, end: 20141204
  6. PRENATAL VITAMINS [Concomitant]
     Active Substance: VITAMINS
  7. DEPO-PROVERA [Concomitant]
     Active Substance: MEDROXYPROGESTERONE ACETATE
     Indication: CONTRACEPTION
  8. MOTRIN [Concomitant]
     Active Substance: IBUPROFEN
     Dosage: 600 MG, UNK
     Route: 048
     Dates: start: 20130328
  9. TORADOL [Concomitant]
     Active Substance: KETOROLAC TROMETHAMINE
     Dosage: 60 MG, UNK
     Route: 030
     Dates: start: 20130508
  10. DECADRON [Concomitant]
     Active Substance: DEXAMETHASONE
  11. NORCO [Concomitant]
     Active Substance: ACETAMINOPHEN\HYDROCODONE BITARTRATE
     Dosage: UNK
     Route: 048
     Dates: start: 20130328

REACTIONS (29)
  - Genital haemorrhage [Not Recovered/Not Resolved]
  - Device dislocation [None]
  - Anxiety [None]
  - Pain [None]
  - Vaginal haemorrhage [None]
  - Abdominal pain [None]
  - Device issue [None]
  - Embedded device [None]
  - Abscess [None]
  - Device difficult to use [None]
  - Fear of disease [None]
  - Injury [None]
  - Pyrexia [None]
  - Ovarian cyst [None]
  - Nausea [None]
  - Depression [None]
  - Vulvovaginal pain [None]
  - Vaginal haemorrhage [Not Recovered/Not Resolved]
  - Headache [Not Recovered/Not Resolved]
  - Dysuria [Not Recovered/Not Resolved]
  - Anhedonia [None]
  - Uterine perforation [None]
  - Caesarean section [None]
  - Infection [None]
  - Pregnancy with contraceptive device [None]
  - Vaginal discharge [None]
  - Dysfunctional uterine bleeding [None]
  - Stress [None]
  - Device expulsion [None]

NARRATIVE: CASE EVENT DATE: 201212
